FAERS Safety Report 6515467-2 (Version None)
Quarter: 2009Q4

REPORT INFORMATION
  Report Type: 
  Country: None (occurrence: None)
  Receive Date: 20091223
  Receipt Date: 20091216
  Transmission Date: 20100525
  Serious: Yes (Hospitalization)
  Sender: FDA-Public Use
  Company Number: GB-ROCHE-675255

PATIENT
  Sex: Male
  Weight: 52.6 kg

DRUGS (5)
  1. TAMIFLU [Suspect]
     Indication: H1N1 INFLUENZA
     Route: 048
     Dates: start: 20091119, end: 20091129
  2. IRINOTECAN HCL [Suspect]
     Indication: MEDULLOBLASTOMA RECURRENT
     Dosage: CYCLIC, DAYS 1-5 DAILY NAD DAYS 8-12 EVERY 3 WEEKS
     Route: 042
     Dates: start: 20091116, end: 20091127
  3. TEMOZOLOMIDE [Suspect]
     Indication: MEDULLOBLASTOMA
     Dosage: DAILY CYCLIC, DAYS 1-5 EVERY 3 WEEKS
     Route: 048
     Dates: start: 20091116, end: 20091120
  4. GRANISETRON [Concomitant]
     Indication: ANTIEMETIC SUPPORTIVE CARE
     Dates: start: 20091113
  5. LOPERAMIDE [Concomitant]
     Indication: DIARRHOEA
     Dates: start: 20091113

REACTIONS (3)
  - DEHYDRATION [None]
  - DIARRHOEA [None]
  - VOMITING [None]
